FAERS Safety Report 19144831 (Version 1)
Quarter: 2021Q2

REPORT INFORMATION
  Report Type: Spontaneous
  Country: RS (occurrence: RS)
  Receive Date: 20210416
  Receipt Date: 20210416
  Transmission Date: 20210717
  Serious: Yes (Life-Threatening, Hospitalization)
  Sender: FDA-Public Use
  Company Number: RS-TEVA-2021-RS-1901583

PATIENT
  Age: 44 Year
  Sex: Female

DRUGS (5)
  1. LEMOD SOLU [Concomitant]
     Active Substance: METHYLPREDNISOLONE SODIUM SUCCINATE
     Indication: LUNG NEOPLASM MALIGNANT
     Route: 042
     Dates: start: 20210309, end: 20210311
  2. CISPLATIN EBEWE [Suspect]
     Active Substance: CISPLATIN
     Indication: LUNG NEOPLASM MALIGNANT
     Dosage: PE PROTOCOL
     Route: 042
     Dates: start: 20210309, end: 20210309
  3. RASETRON [Concomitant]
     Indication: LUNG NEOPLASM MALIGNANT
     Route: 048
  4. CONTROLOC [Concomitant]
     Active Substance: PANTOPRAZOLE SODIUM
     Indication: LUNG NEOPLASM MALIGNANT
     Dosage: CHRONIC THERAPY
     Route: 048
  5. SINTOPOZID [Suspect]
     Active Substance: ETOPOSIDE
     Indication: LUNG NEOPLASM MALIGNANT
     Dosage: PE PROTOCOL
     Route: 042
     Dates: start: 20210309, end: 20210311

REACTIONS (1)
  - Pancytopenia [Recovering/Resolving]

NARRATIVE: CASE EVENT DATE: 20210319
